FAERS Safety Report 24399024 (Version 3)
Quarter: 2024Q4

REPORT INFORMATION
  Report Type: Spontaneous
  Country: FR (occurrence: FR)
  Receive Date: 20241004
  Receipt Date: 20241216
  Transmission Date: 20250115
  Serious: Yes (Hospitalization, Other)
  Sender: KYOWA
  Company Number: FR-KYOWAKIRIN-2024KK022537

PATIENT

DRUGS (4)
  1. CRYSVITA [Suspect]
     Active Substance: BUROSUMAB-TWZA
     Indication: Hereditary hypophosphataemic rickets
     Dosage: 80 MG, 1X/4 WEEKS
     Route: 058
     Dates: start: 20220422, end: 202406
  2. TWYNSTA [Concomitant]
     Active Substance: AMLODIPINE BESYLATE\TELMISARTAN
     Indication: Hypertension
     Dosage: 80 MG/10 MG ONCE DAILY
     Route: 048
     Dates: start: 2011
  3. CALCIUM PHOSPHATE, DIBASIC, ANHYDROUS\MAGNESIUM GLYCEROPHOSPHATE\PHOSP [Concomitant]
     Active Substance: CALCIUM PHOSPHATE, DIBASIC, ANHYDROUS\MAGNESIUM GLYCEROPHOSPHATE\PHOSPHORIC ACID\SODIUM PHOSPHATE, D
     Indication: Product used for unknown indication
     Dosage: 150 DROPS
     Route: 048
     Dates: start: 2000
  4. CHOLECALCIFEROL [Concomitant]
     Active Substance: CHOLECALCIFEROL
     Indication: Product used for unknown indication
     Dosage: 100000 IU, 1X/MONTH
     Route: 048
     Dates: start: 2000

REACTIONS (1)
  - Spinal ligament ossification [Not Recovered/Not Resolved]

NARRATIVE: CASE EVENT DATE: 20230901
